FAERS Safety Report 16962790 (Version 1)
Quarter: 2019Q4

REPORT INFORMATION
  Report Type: Spontaneous
  Country: US (occurrence: US)
  Receive Date: 20191025
  Receipt Date: 20191025
  Transmission Date: 20200122
  Serious: No
  Sender: FDA-Public Use
  Company Number: US-BAUSCH-BL-2019-025919

PATIENT
  Age: 78 Year
  Sex: Male

DRUGS (1)
  1. TIMOLOL MALEATE. [Suspect]
     Active Substance: TIMOLOL MALEATE
     Indication: GLAUCOMA
     Dosage: IN THE MORNING DAILY
     Route: 047
     Dates: start: 20190812, end: 20190812

REACTIONS (1)
  - Eye irritation [Recovering/Resolving]

NARRATIVE: CASE EVENT DATE: 20190812
